FAERS Safety Report 5005985-0 (Version None)
Quarter: 2006Q1

REPORT INFORMATION
  Report Type: 
  Country: None (occurrence: None)
  Receive Date: 20060320
  Receipt Date: 20050208
  Transmission Date: 20060701
  Serious: Yes (Other)
  Sender: FDA-Public Use
  Company Number: 2005-02-0448

PATIENT
  Sex: Male

DRUGS (4)
  1. PEG-INTRON [Suspect]
     Dosage: SEE IMAGE
  2. PEG-INTRON [Suspect]
     Dosage: SEE IMAGE
  3. REBETOL [Suspect]
     Dosage: SEE IMAGE
     Route: 048
  4. REBETOL [Suspect]
     Dosage: SEE IMAGE
     Route: 048

REACTIONS (7)
  - ASTHENIA [None]
  - CONVULSION [None]
  - DEPRESSION [None]
  - DIABETES MELLITUS [None]
  - INFLUENZA LIKE ILLNESS [None]
  - IRRITABILITY [None]
  - THROMBOCYTOPENIA [None]
